FAERS Safety Report 14773973 (Version 3)
Quarter: 2018Q2

REPORT INFORMATION
  Report Type: Spontaneous
  Country: FR (occurrence: FR)
  Receive Date: 20180418
  Receipt Date: 20180605
  Transmission Date: 20180711
  Serious: Yes (Hospitalization, Other)
  Sender: FDA-Public Use
  Company Number: FR-ASTELLAS-2018US017946

PATIENT
  Age: 83 Year
  Sex: Female

DRUGS (1)
  1. VESICARE [Suspect]
     Active Substance: SOLIFENACIN SUCCINATE
     Indication: URINARY INCONTINENCE
     Route: 065
     Dates: start: 201409

REACTIONS (5)
  - Vision blurred [Recovering/Resolving]
  - Pruritus [Recovering/Resolving]
  - Vulval cancer [Unknown]
  - Dry mouth [Recovering/Resolving]
  - Vaginal cancer [Unknown]

NARRATIVE: CASE EVENT DATE: 201409
